FAERS Safety Report 11659000 (Version 4)
Quarter: 2015Q4

REPORT INFORMATION
  Report Type: Report from Study
  Country: CA (occurrence: CA)
  Receive Date: 20151026
  Receipt Date: 20151126
  Transmission Date: 20160304
  Serious: Yes (Other)
  Sender: FDA-Public Use
  Company Number: CA-ROCHE-1630742

PATIENT
  Age: 55 Year
  Sex: Female
  Weight: 88 kg

DRUGS (7)
  1. MORPHINE SR [Concomitant]
     Active Substance: MORPHINE
  2. AVASTIN [Suspect]
     Active Substance: BEVACIZUMAB
     Indication: OVARIAN CANCER
     Route: 042
     Dates: start: 20150813
  3. STATEX (CANADA) [Concomitant]
     Active Substance: MORPHINE SULFATE
  4. AVASTIN [Suspect]
     Active Substance: BEVACIZUMAB
     Route: 042
     Dates: start: 20150903, end: 2015
  5. MOTILIUM [Concomitant]
     Active Substance: DOMPERIDONE
  6. LASIX [Concomitant]
     Active Substance: FUROSEMIDE
  7. DECADRON [Concomitant]
     Active Substance: DEXAMETHASONE

REACTIONS (8)
  - Weight decreased [Unknown]
  - Heart rate increased [Unknown]
  - Eastern Cooperative Oncology Group performance status worsened [Not Recovered/Not Resolved]
  - Oxygen saturation decreased [Unknown]
  - Nausea [Not Recovered/Not Resolved]
  - Blood disorder [Unknown]
  - Protein urine present [Not Recovered/Not Resolved]
  - Fatigue [Not Recovered/Not Resolved]

NARRATIVE: CASE EVENT DATE: 201509
